FAERS Safety Report 7579655-9 (Version None)
Quarter: 2011Q2

REPORT INFORMATION
  Report Type: 
  Country: None (occurrence: None)
  Receive Date: 20110525
  Receipt Date: 20110203
  Transmission Date: 20111010
  Serious: No
  Sender: FDA-Public Use
  Company Number: 321891

PATIENT
  Age: 57 Year
  Sex: Female

DRUGS (1)
  1. VICTOZA [Suspect]
     Indication: PRODUCT USED FOR UNKNOWN INDICATION
     Dosage: 0.6 MG, QD, SUBCUTANEOUS
     Route: 058

REACTIONS (10)
  - FACIAL PAIN [None]
  - ERUCTATION [None]
  - VOMITING [None]
  - DEPRESSED MOOD [None]
  - FLATULENCE [None]
  - COUGH [None]
  - DIARRHOEA [None]
  - NASAL CONGESTION [None]
  - NAUSEA [None]
  - HEADACHE [None]
